FAERS Safety Report 4530861-7 (Version None)
Quarter: 2004Q4

REPORT INFORMATION
  Report Type: 
  Country: None (occurrence: None)
  Receive Date: 20041215
  Receipt Date: 20041206
  Transmission Date: 20050328
  Serious: Yes (Hospitalization)
  Sender: FDA-Public Use
  Company Number: 2004UW24885

PATIENT
  Sex: Male

DRUGS (3)
  1. SEROQUEL [Suspect]
  2. INSULIN [Suspect]
     Indication: DIABETES MELLITUS INSULIN-DEPENDENT
  3. RISPERDAL [Concomitant]

REACTIONS (1)
  - UNEVALUABLE EVENT [None]
